FAERS Safety Report 4804501-3 (Version None)
Quarter: 2005Q4

REPORT INFORMATION
  Report Type: 
  Country: None (occurrence: None)
  Receive Date: 20051017
  Receipt Date: 20050929
  Transmission Date: 20060501
  Serious: Yes (Disabling)
  Sender: FDA-Public Use
  Company Number: DSA_27216_2005

PATIENT
  Age: 78 Year

DRUGS (3)
  1. ENALAPRIL MALEATE [Suspect]
     Indication: CARDIAC FAILURE
     Dosage: 20 MG BID PO
     Route: 048
     Dates: start: 20010101, end: 20050701
  2. AMLODIPINE BESYLATE [Concomitant]
  3. ASPIRIN [Concomitant]

REACTIONS (4)
  - DYSTONIA [None]
  - FACE OEDEMA [None]
  - PAIN [None]
  - SPINAL DISORDER [None]
